FAERS Safety Report 4469677-9 (Version None)
Quarter: 2004Q4

REPORT INFORMATION
  Report Type: 
  Country: None (occurrence: None)
  Receive Date: 20041005
  Receipt Date: 20040920
  Transmission Date: 20050328
  Serious: Yes (Death)
  Sender: FDA-Public Use
  Company Number: 2004AL000271

PATIENT
  Age: 44 Year
  Sex: Female

DRUGS (6)
  1. SERAX (OXAZEPAM)  (ALPHARMA) [Suspect]
  2. ALCOHOL {(NULL.) [Suspect]
  3. ACEPROMETAZINE W/MEPROBAMATE ({NULL}.) [Suspect]
  4. METHADONE ({NULL.}) [Suspect]
  5. NEO-CODION CAPS ({NULL}) [Suspect]
  6. PARACETAMOL [Concomitant]

REACTIONS (9)
  - ALCOHOL USE [None]
  - ASPHYXIA [None]
  - CONJUNCTIVAL HYPERAEMIA [None]
  - CYANOSIS [None]
  - DEPRESSED LEVEL OF CONSCIOUSNESS [None]
  - DRUG INTERACTION POTENTIATION [None]
  - DRUG TOXICITY [None]
  - DYSKINESIA [None]
  - RESPIRATORY DEPRESSION [None]
